FAERS Safety Report 9474871 (Version 2)
Quarter: 2013Q3

REPORT INFORMATION
  Report Type: Spontaneous
  Country: US (occurrence: US)
  Receive Date: 20130823
  Receipt Date: 20130904
  Transmission Date: 20140515
  Serious: Yes (Hospitalization, Disabling)
  Sender: FDA-Public Use
  Company Number: US-009507513-1308USA007393

PATIENT
  Age: 83 Year
  Sex: Male

DRUGS (2)
  1. SINEMET [Suspect]
     Indication: PARKINSON^S DISEASE
     Dosage: 1 1/2 TABLETS TWICE A DAY AND 2 TABLETS THREE TIMES A DAY
     Route: 048
  2. SINEMET [Suspect]
     Dosage: UNK, PRN
     Route: 048

REACTIONS (7)
  - Gastrointestinal tube insertion [Not Recovered/Not Resolved]
  - Fall [Not Recovered/Not Resolved]
  - Dysphagia [Not Recovered/Not Resolved]
  - Drug dose omission [Unknown]
  - Overdose [Unknown]
  - Wrong technique in drug usage process [Unknown]
  - Drug administration error [Unknown]
